FAERS Safety Report 25713564 (Version 1)
Quarter: 2025Q3

REPORT INFORMATION
  Report Type: Spontaneous
  Country: US (occurrence: US)
  Receive Date: 20250822
  Receipt Date: 20250822
  Transmission Date: 20251020
  Serious: No
  Sender: LUPIN
  Company Number: US-LUPIN PHARMACEUTICALS INC.-2025-07383

PATIENT
  Age: 84 Year
  Weight: 72.562 kg

DRUGS (1)
  1. ALBUTEROL SULFATE [Suspect]
     Active Substance: ALBUTEROL SULFATE
     Indication: Chronic obstructive pulmonary disease
     Dosage: QID (FOUR TIMES IN A DAY)

REACTIONS (6)
  - Tremor [Unknown]
  - Drug dose omission by device [Unknown]
  - Device delivery system issue [Unknown]
  - Product lot number issue [Unknown]
  - Product expiration date issue [Unknown]
  - Product packaging quantity issue [Unknown]
